FAERS Safety Report 20791149 (Version 1)
Quarter: 2022Q2

REPORT INFORMATION
  Report Type: Spontaneous
  Country: US (occurrence: None)
  Receive Date: 20220505
  Receipt Date: 20220505
  Transmission Date: 20220721
  Serious: No
  Sender: FDA-Public Use
  Company Number: None

PATIENT
  Age: 67 Year
  Sex: Female
  Weight: 97.65 kg

DRUGS (21)
  1. PAXLOVID [Suspect]
     Active Substance: NIRMATRELVIR\RITONAVIR
     Indication: COVID-19
     Dosage: OTHER QUANTITY : 3 TABLET(S);?FREQUENCY : EVERY 12 HOURS;?
     Route: 048
     Dates: start: 20220421, end: 20220426
  2. BiEst Cream daily [Concomitant]
  3. Testosterone Cream Daily [Concomitant]
  4. DHEA-SR 10 mg daily [Concomitant]
  5. Nature Thyroid 120 mg daily [Concomitant]
  6. Vitamin D 5000 Units Daily [Concomitant]
  7. Progesterone 200 mg daily [Concomitant]
  8. Nikken Joint Complex [Concomitant]
  9. Immunity [Concomitant]
  10. Clarity [Concomitant]
  11. Digestion [Concomitant]
  12. Omega Green [Concomitant]
  13. Biotrust Ageless Body [Concomitant]
  14. LCR AMPK [Concomitant]
  15. Telogenisis [Concomitant]
  16. Irwin Naturals Daily Liquid gel cap multivitamin [Concomitant]
  17. FISH OIL [Concomitant]
     Active Substance: FISH OIL
  18. Conjugated Linoleum Acid [Concomitant]
  19. DIETARY SUPPLEMENT [Concomitant]
     Active Substance: DIETARY SUPPLEMENT
  20. CBD gummies, 25 mg, 2, bid [Concomitant]
  21. Ibuprofen 200 mg 2 bid [Concomitant]

REACTIONS (4)
  - Headache [None]
  - Rhinorrhoea [None]
  - Hyperhidrosis [None]
  - Infection [None]

NARRATIVE: CASE EVENT DATE: 20220501
